FAERS Safety Report 7494041-8 (Version None)
Quarter: 2011Q2

REPORT INFORMATION
  Report Type: 
  Country: None (occurrence: None)
  Receive Date: 20110520
  Receipt Date: 20110516
  Transmission Date: 20111010
  Serious: Yes (Death, Other)
  Sender: FDA-Public Use
  Company Number: DE-PFIZER INC-2011105309

PATIENT
  Sex: Female

DRUGS (3)
  1. CIPROFLOXACIN [Concomitant]
  2. PIPERACILLIN AND TAZOBACTAM [Suspect]
     Indication: BRONCHOPNEUMONIA
  3. AMPICILLIN [Concomitant]
     Indication: BRONCHOPNEUMONIA

REACTIONS (2)
  - MULTI-ORGAN FAILURE [None]
  - HAEMOLYTIC ANAEMIA [None]
